FAERS Safety Report 9169236 (Version 5)
Quarter: 2013Q2

REPORT INFORMATION
  Report Type: Spontaneous
  Country: US (occurrence: US)
  Receive Date: 20130318
  Receipt Date: 20130520
  Transmission Date: 20140414
  Serious: Yes (Hospitalization)
  Sender: FDA-Public Use
  Company Number: US-B.I. PHARMACEUTICALS,INC./RIDGEFIELD-2013-BI-06716BP

PATIENT
  Age: 73 Year
  Sex: Female
  Weight: 68.04 kg

DRUGS (12)
  1. PRADAXA [Suspect]
     Indication: ATRIAL FIBRILLATION
     Dosage: 300 MG
     Dates: start: 20110121, end: 20111225
  2. MULTAQ [Concomitant]
     Dosage: 800 MG
     Route: 048
     Dates: start: 2011
  3. XYZAL [Concomitant]
  4. PROTONIX [Concomitant]
     Dosage: 40 MG
  5. PANTOPRAZOLE [Concomitant]
  6. AVAPRO [Concomitant]
     Dosage: 37.5 MG
     Dates: start: 2009
  7. PRAVACHOL [Concomitant]
     Dosage: 40 MG
  8. VITAMINS [Concomitant]
  9. STADOL [Concomitant]
     Dosage: 5 MG
     Route: 048
  10. VITAMIN E [Concomitant]
     Dosage: 400 U
     Route: 048
  11. VITAMIN D [Concomitant]
     Dosage: 1000 U
     Route: 048
  12. IPRATROPIUM BROMIDE [Concomitant]
     Dosage: 2 PUF

REACTIONS (1)
  - Haemorrhage intracranial [Recovered/Resolved]
